FAERS Safety Report 7581715-3 (Version None)
Quarter: 2011Q2

REPORT INFORMATION
  Report Type: 
  Country: None (occurrence: None)
  Receive Date: 20110629
  Receipt Date: 20110615
  Transmission Date: 20111010
  Serious: Yes (Hospitalization, Other)
  Sender: FDA-Public Use
  Company Number: US-BAYER-201041546NA

PATIENT
  Age: 39 Year
  Sex: Female
  Weight: 91 kg

DRUGS (7)
  1. ZOLOFT [Concomitant]
  2. CLARINEX [Concomitant]
  3. MUCINEX [Concomitant]
  4. YASMIN [Suspect]
     Indication: ACNE
     Dosage: UNK
     Dates: start: 20030101, end: 20060101
  5. AMPICILLIN SODIUM [Concomitant]
  6. PERCOCET [Concomitant]
  7. FLONASE [Concomitant]

REACTIONS (4)
  - GALLBLADDER DISORDER [None]
  - NEPHROLITHIASIS [None]
  - PULMONARY EMBOLISM [None]
  - PAIN [None]
